FAERS Safety Report 6577271-9 (Version None)
Quarter: 2010Q1

REPORT INFORMATION
  Report Type: 
  Country: None (occurrence: None)
  Receive Date: 20100210
  Receipt Date: 20100128
  Transmission Date: 20100710
  Serious: Yes (Death)
  Sender: FDA-Public Use
  Company Number: GB-BAUSCH-2010BL000552

PATIENT
  Age: 19 Year
  Sex: Female

DRUGS (9)
  1. PREDNISOLONE [Suspect]
     Indication: IMMUNOSUPPRESSION
     Route: 048
  2. METHYLPREDNISOLONE [Suspect]
     Indication: IMMUNOSUPPRESSION
     Route: 042
  3. CYCLOSPORINE [Suspect]
     Indication: IMMUNOSUPPRESSION
  4. AZATHIOPRINE [Suspect]
     Indication: IMMUNOSUPPRESSION
  5. GENTAMICIN [Suspect]
     Indication: IMMUNOSUPPRESSION
     Route: 042
  6. CEFTAZIDIME [Suspect]
     Indication: IMMUNOSUPPRESSION
     Route: 042
  7. TEICOPLANIN [Suspect]
     Indication: IMMUNOSUPPRESSION
     Route: 042
  8. FUNGIZONE /USA/ [Suspect]
     Indication: DRUG USE FOR UNKNOWN INDICATION
  9. ITRACONAZOLE [Suspect]
     Indication: DRUG USE FOR UNKNOWN INDICATION

REACTIONS (8)
  - ACUTE PULMONARY OEDEMA [None]
  - AORTIC VALVE DISEASE [None]
  - ASPERGILLOSIS [None]
  - CARDIAC ARREST [None]
  - HYPOTENSION [None]
  - LUNG TRANSPLANT REJECTION [None]
  - PLEURAL EFFUSION [None]
  - SEPSIS [None]
